FAERS Safety Report 15326294 (Version 2)
Quarter: 2018Q4

REPORT INFORMATION
  Report Type: Spontaneous
  Country: NZ (occurrence: NZ)
  Receive Date: 20180828
  Receipt Date: 20181018
  Transmission Date: 20190204
  Serious: Yes (Other)
  Sender: FDA-Public Use
  Company Number: NZ-MYLANLABS-2018M1061514

PATIENT
  Age: 14 Year
  Sex: Male

DRUGS (1)
  1. ISOTANE [Suspect]
     Active Substance: ISOTRETINOIN
     Indication: ACNE
     Dosage: UNK
     Route: 048

REACTIONS (1)
  - Obsessive-compulsive disorder [Not Recovered/Not Resolved]
